FAERS Safety Report 22049770 (Version 1)
Quarter: 2023Q1

REPORT INFORMATION
  Report Type: Spontaneous
  Country: US (occurrence: None)
  Receive Date: 20230228
  Receipt Date: 20230228
  Transmission Date: 20230418
  Serious: Yes (Disabling)
  Sender: FDA-Public Use
  Company Number: None

PATIENT
  Age: 27 Year
  Sex: Male
  Weight: 90 kg

DRUGS (2)
  1. FINASTERIDE [Suspect]
     Active Substance: FINASTERIDE
     Indication: Alopecia
  2. FINASTERIDE [Suspect]
     Active Substance: FINASTERIDE
     Indication: Prophylaxis

REACTIONS (12)
  - Semen viscosity decreased [None]
  - Testicular pain [None]
  - Pruritus [None]
  - Urinary retention [None]
  - Drug ineffective [None]
  - Penile size reduced [None]
  - Erectile dysfunction [None]
  - Anxiety [None]
  - Loss of libido [None]
  - Fatigue [None]
  - Therapy cessation [None]
  - Quality of life decreased [None]

NARRATIVE: CASE EVENT DATE: 20230227
